FAERS Safety Report 8425943-3 (Version None)
Quarter: 2012Q2

REPORT INFORMATION
  Report Type: 
  Country: None (occurrence: None)
  Receive Date: 20120611
  Receipt Date: 20120601
  Transmission Date: 20120825
  Serious: Yes (Other)
  Sender: FDA-Public Use
  Company Number: CN-JNJFOC-20120501289

PATIENT
  Sex: Male
  Weight: 68 kg

DRUGS (2)
  1. RISPERIDONE [Suspect]
     Indication: ACUTE PSYCHOSIS
     Route: 048
     Dates: start: 20110417
  2. RISPERIDONE [Suspect]
     Route: 048
     Dates: end: 20110509

REACTIONS (4)
  - CHEST DISCOMFORT [None]
  - NASAL OBSTRUCTION [None]
  - ASTHMA [None]
  - EXTRAPYRAMIDAL DISORDER [None]
